FAERS Safety Report 10069127 (Version 1)
Quarter: 2014Q2

REPORT INFORMATION
  Report Type: Other
  Country: FR (occurrence: FR)
  Receive Date: 20140409
  Receipt Date: 20140409
  Transmission Date: 20141212
  Serious: Yes (Hospitalization)
  Sender: FDA-Public Use
  Company Number: FR-TAKEDA-2014TJP004596

PATIENT
  Age: 64 Year
  Sex: Female

DRUGS (5)
  1. LANZOR [Suspect]
     Indication: ABDOMINAL PAIN UPPER
     Dosage: 30 MG, QD
     Route: 048
     Dates: start: 201301
  2. LANZOR [Suspect]
     Dosage: 15 MG, QD
     Route: 048
     Dates: start: 201303, end: 20130323
  3. ENBREL [Concomitant]
     Dosage: UNK
     Dates: start: 201211, end: 20130323
  4. CORTICOSTEROIDS [Concomitant]
     Dosage: UNK
  5. METOJECT [Concomitant]
     Dosage: UNK
     Dates: start: 201203, end: 201209

REACTIONS (7)
  - Systemic lupus erythematosus [Recovered/Resolved]
  - Rash erythematous [Recovered/Resolved]
  - Neutropenia [Recovered/Resolved]
  - Pruritus [Recovered/Resolved]
  - Skin exfoliation [Recovered/Resolved]
  - Necrosis [Recovered/Resolved]
  - Rash [Recovered/Resolved]
